FAERS Safety Report 18757634 (Version 1)
Quarter: 2021Q1

REPORT INFORMATION
  Report Type: Spontaneous
  Country: US (occurrence: US)
  Receive Date: 20210119
  Receipt Date: 20210119
  Transmission Date: 20210419
  Serious: Yes (Other)
  Sender: FDA-Public Use
  Company Number: US-TORRENT-00010663

PATIENT
  Age: 21 Year
  Sex: Male

DRUGS (1)
  1. TELMISARTAN. [Suspect]
     Active Substance: TELMISARTAN
     Indication: MALIGNANT HYPERTENSION
     Dosage: 80 MG DAILY

REACTIONS (2)
  - Drug ineffective [Recovered/Resolved]
  - Atypical haemolytic uraemic syndrome [Unknown]
